FAERS Safety Report 9822863 (Version 2)
Quarter: 2014Q1

REPORT INFORMATION
  Report Type: Spontaneous
  Country: US (occurrence: US)
  Receive Date: 20140116
  Receipt Date: 20140123
  Transmission Date: 20141002
  Serious: No
  Sender: FDA-Public Use
  Company Number: US-ACTELION-A-US2014-93326

PATIENT
  Age: 79 Year
  Sex: Female

DRUGS (2)
  1. OPSUMIT [Suspect]
     Indication: PULMONARY ARTERIAL HYPERTENSION
     Dosage: 10 MG, UNK
     Route: 048
     Dates: start: 20131205, end: 20140110
  2. OPSUMIT [Suspect]
     Dosage: UNK
     Route: 048
     Dates: start: 20140112

REACTIONS (2)
  - Tooth abscess [Recovered/Resolved]
  - Influenza [Recovered/Resolved]
